FAERS Safety Report 6433458-7 (Version None)
Quarter: 2009Q4

REPORT INFORMATION
  Report Type: 
  Country: None (occurrence: None)
  Receive Date: 20091106
  Receipt Date: 20091106
  Transmission Date: 20100525
  Serious: No
  Sender: FDA-Public Use
  Company Number: None

PATIENT
  Age: 82 Year
  Sex: Male
  Weight: 79.8331 kg

DRUGS (1)
  1. REVLIMID [Suspect]
     Indication: MULTIPLE MYELOMA
     Dosage: ONE 25 MG CAPSULE EVERY OTHER DAY DENTAL
     Route: 004
     Dates: start: 20090417, end: 20091103

REACTIONS (3)
  - ASTHENIA [None]
  - CONSTIPATION [None]
  - DIARRHOEA [None]
